FAERS Safety Report 10191079 (Version 1)
Quarter: 2014Q2

REPORT INFORMATION
  Report Type: Spontaneous
  Country: US (occurrence: US)
  Receive Date: 20140523
  Receipt Date: 20140523
  Transmission Date: 20141212
  Serious: Yes (Other)
  Sender: FDA-Public Use
  Company Number: US-AMGEN-USASP2014036753

PATIENT
  Age: 85 Year
  Sex: Male

DRUGS (8)
  1. ARANESP [Suspect]
     Indication: PRODUCT USED FOR UNKNOWN INDICATION
     Dosage: 40 MUG, UNK
     Route: 065
     Dates: start: 20140424
  2. FERROUS SULFATE [Concomitant]
  3. HYDROCORTISONE [Concomitant]
  4. DUONEB [Concomitant]
  5. ATIVAN [Concomitant]
  6. OXYCODONE [Concomitant]
  7. PROTONIX [Concomitant]
  8. INSULIN [Concomitant]

REACTIONS (1)
  - Haemoglobin decreased [Unknown]
